FAERS Safety Report 4928631-0 (Version None)
Quarter: 2006Q1

REPORT INFORMATION
  Report Type: 
  Country: None (occurrence: None)
  Receive Date: 20060227
  Receipt Date: 20060227
  Transmission Date: 20060701
  Serious: Yes (Other)
  Sender: FDA-Public Use
  Company Number: None

PATIENT
  Age: 51 Year
  Sex: Female
  Weight: 72.5755 kg

DRUGS (1)
  1. PAXIL [Suspect]
     Indication: MENIERE'S DISEASE
     Dosage: 20 MG  DAILY  PO
     Route: 048
     Dates: start: 20051110, end: 20060219

REACTIONS (14)
  - ALCOHOLISM [None]
  - AMNESIA [None]
  - CONDITION AGGRAVATED [None]
  - DEPRESSION [None]
  - DIZZINESS [None]
  - EX-SMOKER [None]
  - FEAR [None]
  - FEELING ABNORMAL [None]
  - HYPOAESTHESIA [None]
  - IMPAIRED DRIVING ABILITY [None]
  - INSOMNIA [None]
  - MOVEMENT DISORDER [None]
  - MULTIPLE SCLEROSIS [None]
  - SPEECH DISORDER [None]
